FAERS Safety Report 8123114-1 (Version None)
Quarter: 2012Q1

REPORT INFORMATION
  Report Type: 
  Country: None (occurrence: None)
  Receive Date: 20120208
  Receipt Date: 20120201
  Transmission Date: 20120608
  Serious: Yes (Hospitalization, Congenital Anomaly, Other)
  Sender: FDA-Public Use
  Company Number: US-PFIZER INC-2011158503

PATIENT
  Sex: Male
  Weight: 3.2 kg

DRUGS (3)
  1. PREDNISONE [Concomitant]
     Indication: ADDISON'S DISEASE
     Dosage: 5MG EVERY MORNING AND 2.5 MG EVERY NIGHT
  2. EFFEXOR [Suspect]
     Dosage: UNK
  3. PROTONIX [Concomitant]
     Indication: STEROID THERAPY
     Dosage: UNK

REACTIONS (15)
  - HYPOPLASTIC RIGHT HEART SYNDROME [None]
  - ATRIAL SEPTAL DEFECT [None]
  - HEMISENSORY NEGLECT [None]
  - FOETAL EXPOSURE DURING PREGNANCY [None]
  - PULMONARY ARTERY ATRESIA [None]
  - OTITIS MEDIA [None]
  - HEART DISEASE CONGENITAL [None]
  - PYLORIC STENOSIS [None]
  - CONGENITAL HYPOTHYROIDISM [None]
  - MUSCULAR WEAKNESS [None]
  - JAUNDICE NEONATAL [None]
  - CONGENITAL CORONARY ARTERY MALFORMATION [None]
  - CARDIAC ANEURYSM [None]
  - PNEUMOTHORAX [None]
  - HYPOGLYCAEMIA [None]
